FAERS Safety Report 11843678 (Version 1)
Quarter: 2015Q4

REPORT INFORMATION
  Report Type: Spontaneous
  Country: GB (occurrence: GB)
  Receive Date: 20151217
  Receipt Date: 20151217
  Transmission Date: 20160305
  Serious: Yes (Life-Threatening, Disabling, Other)
  Sender: FDA-Public Use
  Company Number: GB-ACCORD-036177

PATIENT
  Age: 26 Year
  Sex: Male

DRUGS (13)
  1. HIBISCRUB [Concomitant]
  2. MACROGOL/MACROGOL STEARATE [Concomitant]
     Dosage: AT NIGHT
  3. ACIDEX [Concomitant]
     Active Substance: CALCIUM CARBONATE\SODIUM ALGINATE\SODIUM BICARBONATE
  4. BACLOFEN. [Concomitant]
     Active Substance: BACLOFEN
  5. KEPPRA [Concomitant]
     Active Substance: LEVETIRACETAM
     Dosage: 500 MG IN THE MORNING AND 1500MG AT NIGHT
  6. FOLIC ACID. [Concomitant]
     Active Substance: FOLIC ACID
  7. BECONASE AQ [Concomitant]
     Active Substance: BECLOMETHASONE DIPROPIONATE MONOHYDRATE
  8. FOSTAIR [Concomitant]
     Active Substance: BECLOMETHASONE\FORMOTEROL
     Dosage: IN MORNING AND NIGHT
     Route: 055
  9. SENNA [Concomitant]
     Active Substance: SENNA LEAF\SENNOSIDES\SENNOSIDES A AND B
  10. VENTOLIN [Concomitant]
     Active Substance: ALBUTEROL SULFATE
     Dosage: IN THE MORNING AND NIGHT
     Route: 055
  11. TRAMADOL/TRAMADOL HYDROCHLORIDE [Suspect]
     Active Substance: TRAMADOL HYDROCHLORIDE
     Indication: ANALGESIC THERAPY
     Route: 048
     Dates: start: 2013, end: 20151124
  12. OMEPRAZOLE. [Concomitant]
     Active Substance: OMEPRAZOLE
  13. GABAPENTIN. [Concomitant]
     Active Substance: GABAPENTIN

REACTIONS (12)
  - Slow speech [Recovering/Resolving]
  - Aggression [None]
  - Dizziness [Recovering/Resolving]
  - Visual impairment [Recovering/Resolving]
  - Inhibitory drug interaction [Unknown]
  - Hypersomnia [Recovering/Resolving]
  - Hypoglycaemia [Recovering/Resolving]
  - Nervousness [None]
  - Mental disorder [Recovering/Resolving]
  - Abnormal sensation in eye [Unknown]
  - Feeling abnormal [None]
  - Hunger [None]

NARRATIVE: CASE EVENT DATE: 2014
